FAERS Safety Report 22100850 (Version 5)
Quarter: 2023Q2

REPORT INFORMATION
  Report Type: Spontaneous
  Country: US (occurrence: US)
  Receive Date: 20230316
  Receipt Date: 20230519
  Transmission Date: 20230722
  Serious: No
  Sender: FDA-Public Use
  Company Number: US-GLAXOSMITHKLINE-US2023AMR039017

PATIENT
  Sex: Female

DRUGS (3)
  1. ZEJULA [Suspect]
     Active Substance: NIRAPARIB
     Indication: Ovarian cancer
     Dosage: 200 MG, QD
  2. ZEJULA [Suspect]
     Active Substance: NIRAPARIB
     Dosage: 200 MG, BID
  3. ZEJULA [Suspect]
     Active Substance: NIRAPARIB
     Dosage: 100 MG, QD
     Dates: start: 20230412

REACTIONS (7)
  - Sleep disorder [Not Recovered/Not Resolved]
  - Constipation [Unknown]
  - Platelet count decreased [Recovering/Resolving]
  - Insomnia [Unknown]
  - Oropharyngeal pain [Unknown]
  - Off label use [Unknown]
  - Product dose omission issue [Unknown]
